FAERS Safety Report 8879333 (Version 1)
Quarter: 2012Q4

REPORT INFORMATION
  Report Type: 
  Country: AT (occurrence: AT)
  Receive Date: 20121031
  Receipt Date: 20121031
  Transmission Date: 20130627
  Serious: Yes (Life-Threatening)
  Sender: FDA-Public Use
  Company Number: AT-SPECTRUM PHARMACEUTICALS, INC.-12-F-AT-00165

PATIENT
  Age: 51 Year
  Sex: Male

DRUGS (6)
  1. FLUOROURACIL [Suspect]
     Indication: RECTAL CANCER
     Dosage: 2400 mg/m2, over 48 hours
     Route: 042
  2. FLUOROURACIL [Suspect]
     Dosage: 400 mg/m2, UNK
     Route: 040
  3. OXALIPLATIN [Suspect]
     Indication: RECTAL CANCER
     Dosage: 85 mg/m2, UNK
     Route: 065
  4. LEUCOVORIN [Suspect]
     Indication: RECTAL CANCER
     Dosage: 400 mg/m2, UNK
     Route: 065
  5. CAPECITABINE [Suspect]
     Indication: RECTAL CANCER
     Dosage: UNK
     Route: 048
  6. RADIATION THERAPY [Suspect]
     Indication: RECTAL CANCER
     Dosage: UNK
     Route: 065

REACTIONS (7)
  - Cardiac failure acute [Recovered/Resolved]
  - Vasoconstriction [Recovered/Resolved]
  - Chest pain [Recovered/Resolved]
  - Electrocardiogram ST segment elevation [Recovered/Resolved]
  - Electrocardiogram T wave abnormal [Recovered/Resolved]
  - Acute coronary syndrome [Recovered/Resolved]
  - N-terminal prohormone brain natriuretic peptide increased [Recovered/Resolved]
